FAERS Safety Report 8565349-X (Version None)
Quarter: 2012Q3

REPORT INFORMATION
  Report Type: 
  Country: None (occurrence: None)
  Receive Date: 20120803
  Receipt Date: 20120725
  Transmission Date: 20120928
  Serious: Yes (Hospitalization)
  Sender: FDA-Public Use
  Company Number: JP-CELGENEUS-087-21660-12031689

PATIENT
  Sex: Female
  Weight: 50 kg

DRUGS (13)
  1. DEPAS [Concomitant]
     Indication: PARKINSON'S DISEASE
     Route: 048
     Dates: start: 20120125
  2. PAXIL [Concomitant]
     Indication: PARKINSON'S DISEASE
     Dosage: 20 MILLIGRAM
     Route: 048
     Dates: start: 20120125
  3. ABRAXANE [Suspect]
     Dosage: 227 MILLIGRAM
     Route: 041
     Dates: start: 20120301
  4. ABRAXANE [Suspect]
     Indication: BREAST CANCER METASTATIC
     Dosage: 227 MILLIGRAM
     Route: 041
     Dates: start: 20111129
  5. CARBIDOPA AND LEVODOPA [Concomitant]
     Indication: PARKINSON'S DISEASE
     Dosage: 4 TABLET
     Route: 048
     Dates: start: 20021101
  6. COMTAN [Concomitant]
     Indication: PARKINSON'S DISEASE
     Dosage: 200 MILLIGRAM
     Route: 048
     Dates: start: 20120125
  7. POLYFUL [Concomitant]
     Indication: PARKINSON'S DISEASE
     Dosage: 3 DOSAGE FORMS
     Route: 048
     Dates: start: 20021101
  8. REQUIP [Concomitant]
     Indication: PARKINSON'S DISEASE
     Dosage: 11 TABLET
     Route: 048
     Dates: start: 20021101
  9. PURSENNID [Concomitant]
     Indication: CONSTIPATION
     Route: 048
     Dates: start: 20021101
  10. ABRAXANE [Suspect]
     Dosage: 227 MILLIGRAM
     Route: 041
     Dates: start: 20120110
  11. ABRAXANE [Suspect]
     Dosage: 227 MILLIGRAM
     Route: 041
     Dates: start: 20120214
  12. BROTIZOLAN [Concomitant]
     Indication: PARKINSON'S DISEASE
     Dosage: .25 MILLIGRAM
     Route: 048
     Dates: start: 20021101
  13. MAGMITT [Concomitant]
     Indication: CONSTIPATION
     Dosage: 990 MILLIGRAM
     Route: 048
     Dates: start: 20021101

REACTIONS (1)
  - PARKINSON'S DISEASE [None]
